FAERS Safety Report 26054149 (Version 1)
Quarter: 2025Q4

REPORT INFORMATION
  Report Type: Spontaneous
  Country: JP (occurrence: JP)
  Receive Date: 20251117
  Receipt Date: 20251117
  Transmission Date: 20260118
  Serious: Yes (Hospitalization)
  Sender: PFIZER
  Company Number: JP-PFIZER INC-PV202500132997

PATIENT
  Age: 64 Year
  Sex: Male

DRUGS (7)
  1. INFLIXIMAB [Suspect]
     Active Substance: INFLIXIMAB
     Indication: Immune-mediated enterocolitis
     Dosage: UNK
  2. PREDNISOLONE [Suspect]
     Active Substance: PREDNISOLONE
     Indication: Immune-mediated enterocolitis
     Dosage: 30 MG, DAILY
  3. PREDNISOLONE [Suspect]
     Active Substance: PREDNISOLONE
     Dosage: 60 MG,DAILY
  4. PREDNISOLONE [Suspect]
     Active Substance: PREDNISOLONE
     Dosage: 10 MG,DAILY
  5. MESALAMINE [Concomitant]
     Active Substance: MESALAMINE
     Indication: Immune-mediated enterocolitis
     Dosage: 3600 MG, DAILY
  6. CYCLOSPORINE [Concomitant]
     Active Substance: CYCLOSPORINE
     Indication: Immune-mediated enterocolitis
     Dosage: 125 MG, DAILY
  7. GANCICLOVIR [Concomitant]
     Active Substance: GANCICLOVIR
     Indication: Immune-mediated enterocolitis

REACTIONS (1)
  - Condition aggravated [Not Recovered/Not Resolved]
